FAERS Safety Report 7057436-2 (Version None)
Quarter: 2010Q4

REPORT INFORMATION
  Report Type: 
  Country: None (occurrence: None)
  Receive Date: 20101022
  Receipt Date: 20101013
  Transmission Date: 20110411
  Serious: Yes (Other)
  Sender: FDA-Public Use
  Company Number: FR-ROCHE-725114

PATIENT
  Sex: Male
  Weight: 69 kg

DRUGS (7)
  1. PEGASYS [Suspect]
     Indication: HEPATITIS C
     Dosage: OTHER INDICATION: POST-HEPATIC CIRRHOSIS
     Route: 065
     Dates: start: 20091016
  2. KALETRA [Concomitant]
     Dosage: DOSE:200/50 UNITS
  3. EFFEXOR [Concomitant]
     Indication: DEPRESSION
     Dosage: DOSE: 75 UNITS
  4. LEXOMIL [Concomitant]
     Indication: DEPRESSION
  5. TRUVADA [Concomitant]
     Route: 048
  6. STILNOX [Concomitant]
     Indication: DEPRESSION
     Dosage: DOSE: 10 UNITS
     Route: 048
  7. TRANXENE [Concomitant]
     Indication: DEPRESSION
     Dosage: FREQ: TWICE
     Route: 048

REACTIONS (5)
  - CATAPLEXY [None]
  - DISTURBANCE IN ATTENTION [None]
  - HYPERSOMNIA [None]
  - MEMORY IMPAIRMENT [None]
  - ROAD TRAFFIC ACCIDENT [None]
